FAERS Safety Report 4354254-0 (Version None)
Quarter: 2004Q2

REPORT INFORMATION
  Report Type: 
  Country: None (occurrence: None)
  Receive Date: 20040506
  Receipt Date: 20040409
  Transmission Date: 20050107
  Serious: Yes (Hospitalization)
  Sender: FDA-Public Use
  Company Number: US-ROCHE-364039

PATIENT
  Age: 51 Year
  Sex: Male

DRUGS (7)
  1. PEG-INTERFERON ALFA 2A (RO 25-8310) [Suspect]
     Indication: HEPATITIS C
     Route: 065
  2. RIBAVIRIN [Suspect]
     Indication: HEPATITIS C
     Route: 048
  3. RIBAVIRIN [Suspect]
     Route: 048
     Dates: start: 20040402
  4. BLINDED POLYENYLPHOSPHATIDYLCHOLINE [Suspect]
     Indication: HEPATITIS C
     Route: 048
  5. COUMADIN [Concomitant]
  6. LOVENOX [Concomitant]
  7. EPOGEN [Concomitant]

REACTIONS (1)
  - DEEP VEIN THROMBOSIS [None]
